FAERS Safety Report 13893908 (Version 1)
Quarter: 2017Q3

REPORT INFORMATION
  Report Type: Spontaneous
  Country: US (occurrence: US)
  Receive Date: 20170822
  Receipt Date: 20170822
  Transmission Date: 20171127
  Serious: Yes (Hospitalization)
  Sender: FDA-Public Use
  Company Number: US-IMPAX LABORATORIES, INC-2017-IPXL-02445

PATIENT
  Age: 7 Year
  Sex: Female

DRUGS (4)
  1. CLONAZEPAM. [Interacting]
     Active Substance: CLONAZEPAM
     Indication: SEIZURE
     Dosage: 0.5 MG, 1 /DAY
     Route: 048
  2. LAMOTRIGINE ODT [Interacting]
     Active Substance: LAMOTRIGINE
     Indication: SEIZURE
     Dosage: 100 MG, 2 /DAY
     Route: 048
  3. DIVALPROEX SODIUM ER [Suspect]
     Active Substance: DIVALPROEX SODIUM
     Indication: SEIZURE
     Dosage: 250 MG, 2 /DAY
     Route: 048
  4. CLOBAZAM [Interacting]
     Active Substance: CLOBAZAM
     Indication: SEIZURE
     Dosage: 15 MG, 2 /DAY
     Route: 048

REACTIONS (5)
  - Herbal interaction [Unknown]
  - Somnolence [Recovered/Resolved]
  - Balance disorder [Recovered/Resolved]
  - Seizure [Unknown]
  - Anticonvulsant drug level increased [Unknown]
